FAERS Safety Report 7638784-1 (Version None)
Quarter: 2011Q3

REPORT INFORMATION
  Report Type: 
  Country: None (occurrence: None)
  Receive Date: 20110721
  Receipt Date: 20110712
  Transmission Date: 20111222
  Serious: Yes (Other)
  Sender: FDA-Public Use
  Company Number: AVE_01683_2010

PATIENT
  Sex: Female
  Weight: 44.4525 kg

DRUGS (3)
  1. CLONIDINE [Suspect]
     Indication: HYPERTENSION
     Dosage: (0.3 MG QD, VIA 1/WEEKLY PATCH TRANSDERMAL), (0.3 MG QD, VIA 1/WEEKLY PATCH TRANSDERMAL)
     Route: 062
     Dates: start: 20091101
  2. CLONIDINE [Suspect]
     Indication: HYPERTENSION
     Dosage: (0.3 MG QD, VIA 1/WEEKLY PATCH TRANSDERMAL), (0.3 MG QD, VIA 1/WEEKLY PATCH TRANSDERMAL)
     Route: 062
     Dates: start: 20110102
  3. CLONIDINE [Suspect]
     Indication: HYPERTENSION
     Route: 062
     Dates: start: 20110102

REACTIONS (4)
  - PRODUCT ADHESION ISSUE [None]
  - DYSPHAGIA [None]
  - BLOOD PRESSURE INCREASED [None]
  - COUGH [None]
